FAERS Safety Report 11870107 (Version 1)
Quarter: 2015Q4

REPORT INFORMATION
  Report Type: Spontaneous
  Country: JP (occurrence: JP)
  Receive Date: 20151228
  Receipt Date: 20151228
  Transmission Date: 20160305
  Serious: No
  Sender: FDA-Public Use
  Company Number: JP-ELI_LILLY_AND_COMPANY-JP201512000030

PATIENT
  Age: 18 Year
  Sex: Female

DRUGS (3)
  1. ZYPREXA [Suspect]
     Active Substance: OLANZAPINE
     Dosage: 2 MG, QD
     Route: 048
     Dates: start: 2015
  2. ZYPREXA [Suspect]
     Active Substance: OLANZAPINE
     Dosage: 1.5 MG, QD
     Route: 048
     Dates: start: 2015, end: 2015
  3. ZYPREXA [Suspect]
     Active Substance: OLANZAPINE
     Indication: SCHIZOPHRENIA
     Dosage: 2.5 MG, QD
     Route: 048
     Dates: start: 201510

REACTIONS (14)
  - Rash [Unknown]
  - Eye colour change [Unknown]
  - Miosis [Unknown]
  - Ocular hyperaemia [Unknown]
  - Menorrhagia [Unknown]
  - Abnormal behaviour [Unknown]
  - Thyroid hormones increased [Unknown]
  - Insomnia [Unknown]
  - Hypersomnia [Unknown]
  - Hyperphagia [Unknown]
  - Depression [Unknown]
  - Wrong technique in product usage process [Unknown]
  - Toothache [Unknown]
  - Ocular icterus [Unknown]

NARRATIVE: CASE EVENT DATE: 2015
